FAERS Safety Report 9437162 (Version 1)
Quarter: 2013Q3

REPORT INFORMATION
  Report Type: Spontaneous
  Country: US (occurrence: US)
  Receive Date: 20130802
  Receipt Date: 20130802
  Transmission Date: 20140515
  Serious: No
  Sender: FDA-Public Use
  Company Number: US-009507513-1307USA006267

PATIENT
  Sex: Female

DRUGS (2)
  1. REMERON [Suspect]
     Dosage: 15 MG, 1 IN 1D
     Route: 048
  2. VIIBRYD [Suspect]
     Dosage: 10 MG, 1 IN 1D
     Route: 048
     Dates: start: 201306

REACTIONS (3)
  - Dysgeusia [Not Recovered/Not Resolved]
  - Oropharyngeal pain [Not Recovered/Not Resolved]
  - Dry mouth [Not Recovered/Not Resolved]
